FAERS Safety Report 10145612 (Version 2)
Quarter: 2014Q2

REPORT INFORMATION
  Report Type: Spontaneous
  Country: DE (occurrence: DE)
  Receive Date: 20140501
  Receipt Date: 20140521
  Transmission Date: 20141212
  Serious: Yes (Hospitalization)
  Sender: FDA-Public Use
  Company Number: DE-AMGEN INC.-DEUSP2014031243

PATIENT
  Age: 48 Year
  Sex: Female

DRUGS (3)
  1. ENBREL [Suspect]
     Indication: PRODUCT USED FOR UNKNOWN INDICATION
     Dosage: UNK
     Route: 065
     Dates: start: 20140115
  2. ORTHOMOL IMMUN [Suspect]
     Indication: PRODUCT USED FOR UNKNOWN INDICATION
     Dosage: UNK
     Route: 065
     Dates: start: 20140212, end: 20140321
  3. CITALOPRAM [Concomitant]
     Dosage: 30 MG, UNK
     Dates: start: 20140210

REACTIONS (2)
  - Abscess [Recovering/Resolving]
  - Inflammation [Recovering/Resolving]
